FAERS Safety Report 9372023 (Version 1)
Quarter: 2013Q2

REPORT INFORMATION
  Report Type: Spontaneous
  Country: FR (occurrence: FR)
  Receive Date: 20130627
  Receipt Date: 20130627
  Transmission Date: 20140414
  Serious: Yes (Other)
  Sender: FDA-Public Use
  Company Number: FR-ROXANE LABORATORIES, INC.-2013-RO-01034RO

PATIENT
  Age: 23 Year
  Sex: Male

DRUGS (2)
  1. LEVETIRACETAM [Suspect]
     Dosage: 1 G
  2. VALPROATE [Suspect]
     Dosage: 1750 G

REACTIONS (1)
  - Hypoglycaemia [Recovered/Resolved]
